FAERS Safety Report 16824175 (Version 1)
Quarter: 2019Q3

REPORT INFORMATION
  Report Type: Spontaneous
  Country: US (occurrence: US)
  Receive Date: 20190918
  Receipt Date: 20190918
  Transmission Date: 20191005
  Serious: Yes (Disabling, Other)
  Sender: FDA-Public Use
  Company Number: US-GILEAD-2019-0427888

PATIENT
  Age: 47 Year
  Sex: Male

DRUGS (9)
  1. CENTRUM A TO ZINC [Concomitant]
     Active Substance: MINERALS\VITAMINS
  2. MEPERIDINE HCL [Concomitant]
     Active Substance: MEPERIDINE HYDROCHLORIDE
     Dosage: UNK
     Dates: start: 200307
  3. VIRACEPT [Suspect]
     Active Substance: NELFINAVIR MESYLATE
     Indication: HIV INFECTION
     Dosage: 1250 MG, BID
     Route: 048
  4. NITROGLYCERIN. [Concomitant]
     Active Substance: NITROGLYCERIN
     Dosage: UNK
     Dates: start: 200307
  5. VIDEX [Suspect]
     Active Substance: DIDANOSINE
     Indication: HIV INFECTION
     Dosage: 350 MG
     Route: 065
  6. EPIVIR [Suspect]
     Active Substance: LAMIVUDINE
     Indication: HIV INFECTION
     Dosage: UNK
     Route: 065
     Dates: start: 200308
  7. LIPITOR [Concomitant]
     Active Substance: ATORVASTATIN CALCIUM
  8. ZERIT [Suspect]
     Active Substance: STAVUDINE
     Indication: HIV INFECTION
     Dosage: UNK
     Route: 065
     Dates: end: 200308
  9. VIREAD [Suspect]
     Active Substance: TENOFOVIR DISOPROXIL FUMARATE
     Indication: HIV INFECTION
     Dosage: 300 MG
     Route: 065
     Dates: start: 200308

REACTIONS (9)
  - Fatigue [Unknown]
  - Visual impairment [Unknown]
  - Balance disorder [Unknown]
  - Ischaemia [Unknown]
  - Impaired work ability [Unknown]
  - Somnolence [Unknown]
  - Disorientation [Unknown]
  - Memory impairment [Unknown]
  - Disturbance in attention [Unknown]
